FAERS Safety Report 19572686 (Version 2)
Quarter: 2021Q4

REPORT INFORMATION
  Report Type: Report from Study
  Country: CO (occurrence: CO)
  Receive Date: 20210715
  Receipt Date: 20211022
  Transmission Date: 20220303
  Serious: Yes (Hospitalization, Other)
  Sender: FDA-Public Use
  Company Number: CO-JNJFOC-20210718109

PATIENT
  Age: 34 Year
  Sex: Female
  Weight: 68 kg

DRUGS (1)
  1. SIMPONI [Suspect]
     Active Substance: GOLIMUMAB
     Indication: Ankylosing spondylitis
     Route: 058
     Dates: start: 20210604

REACTIONS (6)
  - Hypovolaemic shock [Recovering/Resolving]
  - Myomectomy [Recovering/Resolving]
  - Discouragement [Recovered/Resolved]
  - Nausea [Recovered/Resolved]
  - Chills [Recovered/Resolved]
  - Post procedural haematoma [Recovering/Resolving]

NARRATIVE: CASE EVENT DATE: 20210604
